FAERS Safety Report 6518462-2 (Version None)
Quarter: 2009Q4

REPORT INFORMATION
  Report Type: 
  Country: None (occurrence: None)
  Receive Date: 20091226
  Receipt Date: 20091214
  Transmission Date: 20100525
  Serious: No
  Sender: FDA-Public Use
  Company Number: US-JNJFOC-20090903566

PATIENT
  Sex: Female
  Weight: 112.49 kg

DRUGS (5)
  1. FENTANYL-100 [Suspect]
     Indication: PAIN
     Route: 062
  2. FENTANYL-100 [Suspect]
     Route: 062
  3. FENTANYL-100 [Suspect]
     Route: 062
  4. FENTANYL-100 [Suspect]
     Route: 062
  5. 5 UNSPECIFIED MEDICATIONS [Concomitant]
     Route: 065

REACTIONS (2)
  - PRODUCT QUALITY ISSUE [None]
  - WRONG TECHNIQUE IN DRUG USAGE PROCESS [None]
